FAERS Safety Report 12132274 (Version 1)
Quarter: 2016Q1

REPORT INFORMATION
  Report Type: Spontaneous
  Country: DE (occurrence: DE)
  Receive Date: 20160301
  Receipt Date: 20160301
  Transmission Date: 20160526
  Serious: Yes (Other)
  Sender: FDA-Public Use
  Company Number: GXKR2016DE001059

PATIENT

DRUGS (6)
  1. OLANZAPIN [Suspect]
     Active Substance: OLANZAPINE
     Indication: INCREASED APPETITE
     Route: 048
     Dates: start: 201510
  2. NOXAFIL [Concomitant]
     Active Substance: POSACONAZOLE
     Indication: STEM CELL TRANSPLANT
     Route: 048
  3. PANTOZOL [Concomitant]
     Active Substance: PANTOPRAZOLE SODIUM
     Indication: PRODUCT USED FOR UNKNOWN INDICATION
     Route: 048
  4. HIDROCORTISON [Concomitant]
     Active Substance: HYDROCORTISONE
     Indication: STEM CELL TRANSPLANT
     Route: 048
  5. ACICLOVIR [Concomitant]
     Active Substance: ACYCLOVIR
     Indication: STEM CELL TRANSPLANT
     Route: 048
  6. BISOPROLOL [Concomitant]
     Active Substance: BISOPROLOL
     Indication: ATRIAL FIBRILLATION
     Route: 048

REACTIONS (2)
  - Bicytopenia [Recovering/Resolving]
  - Orthostatic intolerance [Recovering/Resolving]

NARRATIVE: CASE EVENT DATE: 20160129
